FAERS Safety Report 24146820 (Version 5)
Quarter: 2025Q3

REPORT INFORMATION
  Report Type: Spontaneous
  Country: EU (occurrence: EU)
  Receive Date: 20240729
  Receipt Date: 20250808
  Transmission Date: 20251021
  Serious: Yes (Hospitalization, Other)
  Sender: AUROBINDO
  Company Number: EU-AUROBINDO-AUR-APL-2024-037236

PATIENT
  Age: 79 Year
  Sex: Female

DRUGS (5)
  1. ACETAMINOPHEN [Suspect]
     Active Substance: ACETAMINOPHEN
     Indication: Osteitis deformans
     Route: 065
  2. TAPENTADOL [Interacting]
     Active Substance: TAPENTADOL
     Indication: Osteitis deformans
     Route: 065
  3. TRAMADOL [Interacting]
     Active Substance: TRAMADOL
     Indication: Osteitis deformans
     Route: 065
  4. ASPIRIN LYSINE [Suspect]
     Active Substance: ASPIRIN LYSINE
     Indication: Product used for unknown indication
     Route: 065
  5. METAMIZOLE [Suspect]
     Active Substance: METAMIZOLE
     Indication: Product used for unknown indication
     Route: 065

REACTIONS (3)
  - Serotonin syndrome [Recovered/Resolved]
  - Hyperthermia malignant [Recovered/Resolved]
  - Hyperthermia [Recovered/Resolved]
